FAERS Safety Report 8056754-9 (Version None)
Quarter: 2012Q1

REPORT INFORMATION
  Report Type: 
  Country: None (occurrence: None)
  Receive Date: 20120119
  Receipt Date: 20120112
  Transmission Date: 20120608
  Serious: Yes (Hospitalization)
  Sender: FDA-Public Use
  Company Number: US-GLAXOSMITHKLINE-A0898253A

PATIENT
  Age: 59 Year
  Sex: Male
  Weight: 85.5 kg

DRUGS (1)
  1. AVANDIA [Suspect]
     Indication: DIABETES MELLITUS
     Dosage: 8MG PER DAY
     Route: 048
     Dates: start: 20020122, end: 20070525

REACTIONS (4)
  - AMNESIA [None]
  - TRANSIENT ISCHAEMIC ATTACK [None]
  - CARDIAC ARREST [None]
  - IMPLANTABLE DEFIBRILLATOR INSERTION [None]
